FAERS Safety Report 22151455 (Version 1)
Quarter: 2023Q1

REPORT INFORMATION
  Report Type: Spontaneous
  Country: US (occurrence: None)
  Receive Date: 20230328
  Receipt Date: 20230328
  Transmission Date: 20230417
  Serious: Yes (Hospitalization)
  Sender: FDA-Public Use
  Company Number: None

PATIENT
  Sex: Male

DRUGS (2)
  1. AMBRISENTAN [Suspect]
     Active Substance: AMBRISENTAN
     Indication: Pulmonary arterial hypertension
     Dosage: 5 MG ONCE DAILY BY MOUTH
     Route: 048
     Dates: start: 20221223
  2. ORENITRAM [Suspect]
     Active Substance: TREPROSTINIL

REACTIONS (6)
  - Therapy change [None]
  - Headache [None]
  - Nausea [None]
  - Weight decreased [None]
  - Decreased appetite [None]
  - Pneumonia [None]
